FAERS Safety Report 8518874-1 (Version None)
Quarter: 2012Q3

REPORT INFORMATION
  Report Type: 
  Country: None (occurrence: None)
  Receive Date: 20120718
  Receipt Date: 20120716
  Transmission Date: 20120928
  Serious: Yes (Death)
  Sender: FDA-Public Use
  Company Number: PHHY2012MX052149

PATIENT
  Sex: Female

DRUGS (2)
  1. ENALAPRIL MALEATE [Concomitant]
     Indication: HYPERTENSION
     Dosage: 10 MG/L, UNK
     Dates: start: 19900101, end: 20100107
  2. ZOLEDRONOC ACID [Suspect]
     Indication: OSTEOPOROSIS
     Dosage: 5 MG/100 ML, PER YEAR
     Route: 042

REACTIONS (2)
  - PULMONARY OEDEMA [None]
  - RESPIRATORY ARREST [None]
